FAERS Safety Report 4712558-3 (Version None)
Quarter: 2005Q3

REPORT INFORMATION
  Report Type: 
  Country: None (occurrence: None)
  Receive Date: 20050711
  Receipt Date: 20050527
  Transmission Date: 20060218
  Serious: Yes (Hospitalization)
  Sender: FDA-Public Use
  Company Number: 21-732-2005-M0040

PATIENT
  Sex: Male

DRUGS (1)
  1. VANTAS [Suspect]
     Indication: PROSTATE CANCER
     Dosage: 50MG/YEAR, SUBCUTANEOUS
     Route: 058
     Dates: start: 20050126

REACTIONS (1)
  - POLYMYOSITIS [None]
